FAERS Safety Report 23125204 (Version 1)
Quarter: 2023Q4

REPORT INFORMATION
  Report Type: Spontaneous
  Country: FR (occurrence: FR)
  Receive Date: 20231030
  Receipt Date: 20231030
  Transmission Date: 20240109
  Serious: Yes (Death)
  Sender: FDA-Public Use
  Company Number: FR-SUN PHARMACEUTICAL INDUSTRIES LTD-2023RR-414982

PATIENT
  Age: 79 Year
  Sex: Male
  Weight: 58.2 kg

DRUGS (3)
  1. FLUOXETINE [Suspect]
     Active Substance: FLUOXETINE HYDROCHLORIDE
     Indication: Depression
     Dosage: 20 MILLIGRAM, DAILY
     Route: 048
     Dates: start: 202302
  2. PREDNISONE [Suspect]
     Active Substance: PREDNISONE
     Indication: Subdural haematoma
     Dosage: 80 MILLIGRAM, DAILY
     Route: 048
     Dates: start: 20230307
  3. KEPPRA [Suspect]
     Active Substance: LEVETIRACETAM
     Indication: Subdural haematoma
     Dosage: 3 DOSAGE FORM, DAILY
     Route: 048
     Dates: start: 20230306

REACTIONS (1)
  - Completed suicide [Fatal]

NARRATIVE: CASE EVENT DATE: 20230311
